FAERS Safety Report 11503841 (Version 3)
Quarter: 2015Q4

REPORT INFORMATION
  Report Type: Spontaneous
  Country: US (occurrence: US)
  Receive Date: 20150914
  Receipt Date: 20151007
  Transmission Date: 20160304
  Serious: Yes (Death, Hospitalization)
  Sender: FDA-Public Use
  Company Number: US-ACTELION-A-US2015-118695

PATIENT
  Age: 51 Year
  Sex: Female

DRUGS (1)
  1. VELETRI [Suspect]
     Active Substance: EPOPROSTENOL
     Indication: PULMONARY ARTERIAL HYPERTENSION
     Dosage: 23 NG/KG, PER MIN
     Route: 042
     Dates: start: 20150109, end: 20150925

REACTIONS (11)
  - Respiratory failure [Fatal]
  - Pain in jaw [Unknown]
  - Peripheral swelling [Unknown]
  - Decreased appetite [Unknown]
  - Cardiac failure [Fatal]
  - Dyspnoea [Unknown]
  - Chest pain [Unknown]
  - Diarrhoea [Unknown]
  - Fluid overload [Unknown]
  - Abdominal pain [Unknown]
  - Pain [Unknown]

NARRATIVE: CASE EVENT DATE: 20150525
